FAERS Safety Report 6292941-8 (Version None)
Quarter: 2009Q3

REPORT INFORMATION
  Report Type: 
  Country: None (occurrence: None)
  Receive Date: 20090731
  Receipt Date: 20090720
  Transmission Date: 20100115
  Serious: Yes (Other)
  Sender: FDA-Public Use
  Company Number: FR-PFIZER INC-2009243778

PATIENT
  Age: 34 Year

DRUGS (3)
  1. CHAMPIX [Suspect]
     Indication: SMOKING CESSATION THERAPY
     Dosage: UNK
     Dates: start: 20090101
  2. CHAMPIX [Suspect]
     Dosage: 1 MG, 2X/DAY
     Dates: start: 20090101
  3. CHAMPIX [Suspect]
     Dosage: 1.5 MG, 1X/DAY
     Dates: start: 20090101, end: 20090717

REACTIONS (3)
  - DEPRESSED MOOD [None]
  - MORBID THOUGHTS [None]
  - SUICIDAL IDEATION [None]
